FAERS Safety Report 16101527 (Version 1)
Quarter: 2019Q1

REPORT INFORMATION
  Report Type: Spontaneous
  Country: US (occurrence: US)
  Receive Date: 20190321
  Receipt Date: 20190321
  Transmission Date: 20190418
  Serious: No
  Sender: FDA-Public Use
  Company Number: US-THE RITEDOSE CORPORATION-2018RIT000144

PATIENT

DRUGS (1)
  1. IPRATROPIUM BROMIDE INHALATION SOLUTION [Suspect]
     Active Substance: IPRATROPIUM BROMIDE
     Indication: ASTHMA
     Dosage: UNK
     Route: 055
     Dates: start: 20180508

REACTIONS (8)
  - Insomnia [Unknown]
  - Chest discomfort [Unknown]
  - Back pain [Unknown]
  - Myalgia [Unknown]
  - Drug ineffective [Unknown]
  - Nonspecific reaction [Unknown]
  - Dysphonia [Unknown]
  - Dyspnoea [Unknown]

NARRATIVE: CASE EVENT DATE: 20180509
